FAERS Safety Report 4872510-4 (Version None)
Quarter: 2005Q4

REPORT INFORMATION
  Report Type: 
  Country: None (occurrence: None)
  Receive Date: 20051230
  Receipt Date: 20051230
  Transmission Date: 20060501
  Serious: Yes (Life-Threatening)
  Sender: FDA-Public Use
  Company Number: None

PATIENT
  Sex: Female
  Weight: 86.1834 kg

DRUGS (2)
  1. AZATHIOPRINE [Suspect]
     Indication: BEHCET'S SYNDROME
     Dosage: 200 MG PO EVERY DAY ORAL
     Route: 048
     Dates: start: 20051110, end: 20051117
  2. AZATHIOPRINE [Suspect]
     Indication: BEHCET'S SYNDROME
     Dosage: 200 MG PO EVERY DAY ORAL
     Route: 048
     Dates: start: 20051219, end: 20051220

REACTIONS (4)
  - BACTERAEMIA [None]
  - DRUG HYPERSENSITIVITY [None]
  - SEPSIS [None]
  - TOOTH ABSCESS [None]
